FAERS Safety Report 16338809 (Version 1)
Quarter: 2019Q2

REPORT INFORMATION
  Report Type: Spontaneous
  Country: US (occurrence: US)
  Receive Date: 20190521
  Receipt Date: 20190521
  Transmission Date: 20190711
  Serious: No
  Sender: FDA-Public Use
  Company Number: US-ANIPHARMA-2018-US-016878

PATIENT
  Age: 70 Year
  Sex: Female
  Weight: 55.79 kg

DRUGS (3)
  1. INDERAL LA [Suspect]
     Active Substance: PROPRANOLOL HYDROCHLORIDE
     Indication: CARDIAC FLUTTER
     Dosage: 1 CAPSULE BY MOUTH ONCE DAILY IN PM
     Route: 048
     Dates: start: 2008
  2. ZETIA [Concomitant]
     Active Substance: EZETIMIBE
  3. NEXIUM [Concomitant]
     Active Substance: ESOMEPRAZOLE MAGNESIUM

REACTIONS (2)
  - Off label use [Not Recovered/Not Resolved]
  - Cardiac flutter [Not Recovered/Not Resolved]

NARRATIVE: CASE EVENT DATE: 2008
